FAERS Safety Report 21490915 (Version 1)
Quarter: 2022Q4

REPORT INFORMATION
  Report Type: Spontaneous
  Country: KR (occurrence: KR)
  Receive Date: 20221021
  Receipt Date: 20221021
  Transmission Date: 20230112
  Serious: Yes (Other)
  Sender: FDA-Public Use
  Company Number: KR-SUN PHARMACEUTICAL INDUSTRIES LTD-2022RR-359599

PATIENT
  Age: 69 Year
  Sex: Female

DRUGS (8)
  1. GEMCITABINE [Suspect]
     Active Substance: GEMCITABINE
     Indication: Ovarian cancer metastatic
     Dosage: UNK
     Route: 065
     Dates: start: 201602, end: 201802
  2. CARBOPLATIN [Suspect]
     Active Substance: CARBOPLATIN
     Indication: Ovarian cancer metastatic
     Dosage: UNK
     Route: 065
  3. CARBOPLATIN [Suspect]
     Active Substance: CARBOPLATIN
     Dosage: UNK
     Route: 065
     Dates: start: 201306
  4. DOXORUBICIN HYDROCHLORIDE [Suspect]
     Active Substance: DOXORUBICIN HYDROCHLORIDE
     Indication: Ovarian cancer metastatic
     Dosage: UNK
     Route: 065
     Dates: start: 201602, end: 201702
  5. PACLITAXEL [Suspect]
     Active Substance: PACLITAXEL
     Indication: Ovarian cancer metastatic
     Dosage: UNK
     Route: 065
  6. PACLITAXEL [Suspect]
     Active Substance: PACLITAXEL
     Dosage: UNK
     Route: 065
     Dates: start: 201306
  7. TOPOTECAN [Suspect]
     Active Substance: TOPOTECAN HYDROCHLORIDE
     Indication: Ovarian cancer metastatic
     Dosage: UNK
     Route: 065
     Dates: start: 201602, end: 201702
  8. VINORELBINE [Suspect]
     Active Substance: VINORELBINE TARTRATE
     Indication: Ovarian cancer metastatic
     Dosage: UNK
     Route: 065
     Dates: start: 201602, end: 201702

REACTIONS (1)
  - Treatment failure [Unknown]
